FAERS Safety Report 10249362 (Version 1)
Quarter: 2014Q2

REPORT INFORMATION
  Report Type: Spontaneous
  Country: US (occurrence: None)
  Receive Date: 20140619
  Receipt Date: 20140619
  Transmission Date: 20141212
  Serious: No
  Sender: FDA-Public Use
  Company Number: None

PATIENT
  Age: 78 Year
  Sex: Female
  Weight: 65.77 kg

DRUGS (1)
  1. METOPROLOL 25 MGMS SUN/CARACO PHARM [Suspect]
     Indication: VENTRICULAR EXTRASYSTOLES
     Dosage: 1 TABLET TWICE DAILY TAKEN BY MOUTH
     Route: 048

REACTIONS (3)
  - Excessive eye blinking [None]
  - Visual impairment [None]
  - Feeling abnormal [None]
